FAERS Safety Report 4519085-7 (Version None)
Quarter: 2004Q4

REPORT INFORMATION
  Report Type: 
  Country: None (occurrence: None)
  Receive Date: 20041206
  Receipt Date: 20041125
  Transmission Date: 20050328
  Serious: Yes (Hospitalization)
  Sender: FDA-Public Use
  Company Number: 200414448FR

PATIENT
  Age: 83 Year
  Sex: Male

DRUGS (6)
  1. LASILIX [Suspect]
     Indication: ESSENTIAL HYPERTENSION
     Route: 048
  2. PREVISCAN [Suspect]
     Route: 048
  3. DEROXAT [Suspect]
     Indication: DEPRESSION
     Route: 048
  4. CORDARONE [Suspect]
     Indication: ARRHYTHMIA
     Route: 048
  5. DIGOXIN [Suspect]
     Indication: ARRHYTHMIA
     Route: 048
  6. APROVEL [Suspect]
     Indication: ESSENTIAL HYPERTENSION
     Route: 048

REACTIONS (3)
  - DRUG INTERACTION [None]
  - OVERDOSE [None]
  - PROTHROMBIN TIME PROLONGED [None]
